FAERS Safety Report 24406183 (Version 2)
Quarter: 2024Q4

REPORT INFORMATION
  Report Type: Report from Study
  Country: CA (occurrence: CA)
  Receive Date: 20241007
  Receipt Date: 20241015
  Transmission Date: 20250114
  Serious: No
  Sender: TAKEDA
  Company Number: CA-TAKEDA-2024TUS098382

PATIENT
  Sex: Female

DRUGS (4)
  1. VEDOLIZUMAB [Suspect]
     Active Substance: VEDOLIZUMAB
     Indication: Colitis ulcerative
     Dosage: 300 MILLIGRAM
     Route: 042
     Dates: start: 20231127
  2. VEDOLIZUMAB [Suspect]
     Active Substance: VEDOLIZUMAB
     Indication: Colitis ulcerative
     Dosage: 108 MILLIGRAM, Q2WEEKS
     Route: 058
     Dates: start: 20240306
  3. PREDNISONE [Concomitant]
     Active Substance: PREDNISONE
     Dosage: UNK MILLIGRAM
     Dates: start: 20231114
  4. IRON [Concomitant]
     Active Substance: IRON
     Dosage: UNK

REACTIONS (3)
  - Memory impairment [Unknown]
  - Stress [Unknown]
  - Headache [Unknown]
